FAERS Safety Report 6238429-1 (Version None)
Quarter: 2009Q2

REPORT INFORMATION
  Report Type: 
  Country: None (occurrence: None)
  Receive Date: 20090622
  Receipt Date: 20090615
  Transmission Date: 20091009
  Serious: Yes (Other)
  Sender: FDA-Public Use
  Company Number: US-BAYER-200923821NA

PATIENT
  Sex: Female

DRUGS (1)
  1. OCELLA [Suspect]
     Route: 048
     Dates: start: 20090401, end: 20090601

REACTIONS (5)
  - DIZZINESS [None]
  - LOSS OF CONSCIOUSNESS [None]
  - NAUSEA [None]
  - VOMITING [None]
  - WITHDRAWAL BLEED [None]
